FAERS Safety Report 17257121 (Version 2)
Quarter: 2020Q4

REPORT INFORMATION
  Report Type: Spontaneous
  Country: US (occurrence: US)
  Receive Date: 20200110
  Receipt Date: 20201211
  Transmission Date: 20210113
  Serious: Yes (Other)
  Sender: FDA-Public Use
  Company Number: US-PFIZER INC-2018180077

PATIENT

DRUGS (16)
  1. NITROGLYCERIN. [Suspect]
     Active Substance: NITROGLYCERIN
     Indication: PRINZMETAL ANGINA
     Dosage: UNK
     Route: 064
  2. NITROGLYCERIN. [Suspect]
     Active Substance: NITROGLYCERIN
     Indication: CHEST PAIN
  3. NITROGLYCERIN. [Suspect]
     Active Substance: NITROGLYCERIN
     Indication: PRINZMETAL ANGINA
     Dosage: UNK (500 MCG/MIN)
     Route: 064
  4. VERAPAMIL HCL [Suspect]
     Active Substance: VERAPAMIL HYDROCHLORIDE
     Indication: VENTRICULAR FIBRILLATION
     Dosage: 120 MG, 3X/DAY
     Route: 064
  5. NIFEDIPINE. [Suspect]
     Active Substance: NIFEDIPINE
     Indication: VENTRICULAR TACHYCARDIA
  6. MAGNESIUM SULFATE. [Suspect]
     Active Substance: MAGNESIUM SULFATE
     Indication: ATRIAL FIBRILLATION
     Dosage: UNK
     Route: 064
  7. LORAZEPAM. [Suspect]
     Active Substance: LORAZEPAM
     Indication: VENTRICULAR FIBRILLATION
     Dosage: UNK, AS NEEDED
     Route: 064
  8. FENTANYL CITRATE. [Suspect]
     Active Substance: FENTANYL CITRATE
     Indication: SEDATION
     Dosage: UNK
     Route: 064
  9. DIAZEPAM. [Suspect]
     Active Substance: DIAZEPAM
     Indication: VENTRICULAR FIBRILLATION
     Dosage: 7 MG, 3X/DAY
     Route: 064
  10. NIFEDIPINE. [Suspect]
     Active Substance: NIFEDIPINE
     Indication: ANGINA PECTORIS
  11. METOPROLOL TARTRATE. [Suspect]
     Active Substance: METOPROLOL TARTRATE
     Indication: VENTRICULAR FIBRILLATION
     Dosage: 25 MG, 3X/DAY
     Route: 064
  12. ROPIVACAINE HYDROCHLORIDE. [Suspect]
     Active Substance: ROPIVACAINE HYDROCHLORIDE
     Indication: ANGINA PECTORIS
     Dosage: UNK (4MG/HR)
     Route: 064
  13. PROPOFOL. [Suspect]
     Active Substance: PROPOFOL
     Indication: SEDATION
     Dosage: UNK
     Route: 064
  14. VERAPAMIL HCL [Suspect]
     Active Substance: VERAPAMIL HYDROCHLORIDE
     Dosage: 240 MG, 3X/DAY
     Route: 064
  15. ISOSORBIDE MONONITRATE. [Suspect]
     Active Substance: ISOSORBIDE MONONITRATE
     Indication: PRINZMETAL ANGINA
     Dosage: 60 MG, DAILY
     Route: 064
  16. NIFEDIPINE. [Suspect]
     Active Substance: NIFEDIPINE
     Indication: VENTRICULAR FIBRILLATION
     Dosage: 90 MG, DAILY
     Route: 064

REACTIONS (2)
  - Maternal exposure during pregnancy [Unknown]
  - Premature baby [Unknown]
